FAERS Safety Report 12280601 (Version 1)
Quarter: 2016Q2

REPORT INFORMATION
  Report Type: Spontaneous
  Country: US (occurrence: US)
  Receive Date: 20160419
  Receipt Date: 20160419
  Transmission Date: 20160815
  Serious: No
  Sender: FDA-Public Use
  Company Number: US-GLENMARK PHARMACEUTICALS INC, USA.-2015GMK016979

PATIENT
  Age: 89 Year
  Sex: Male

DRUGS (1)
  1. CITALOPRAM HYDROBROMIDE. [Suspect]
     Active Substance: CITALOPRAM HYDROBROMIDE
     Indication: SEXUALLY INAPPROPRIATE BEHAVIOUR
     Dosage: UNK

REACTIONS (3)
  - Off label use [None]
  - Sexually inappropriate behaviour [Unknown]
  - Condition aggravated [Unknown]
